FAERS Safety Report 7090891-0 (Version None)
Quarter: 2010Q4

REPORT INFORMATION
  Report Type: 
  Country: None (occurrence: None)
  Receive Date: 20101109
  Receipt Date: 20101027
  Transmission Date: 20110411
  Serious: Yes (Hospitalization, Other)
  Sender: FDA-Public Use
  Company Number: US-AMGEN-QUU415428

PATIENT

DRUGS (2)
  1. NPLATE [Suspect]
     Indication: IDIOPATHIC THROMBOCYTOPENIC PURPURA
     Dosage: 10 A?G/KG, UNK
     Dates: start: 20091209, end: 20100316
  2. VANCOMYCIN [Suspect]
     Dosage: UNK
     Dates: start: 20100501

REACTIONS (26)
  - ACUTE MYELOID LEUKAEMIA [None]
  - APLASTIC ANAEMIA [None]
  - BACK PAIN [None]
  - BIOPSY BONE MARROW ABNORMAL [None]
  - BRAIN OEDEMA [None]
  - CELLULITIS [None]
  - CONJUNCTIVAL HAEMORRHAGE [None]
  - CONTUSION [None]
  - DIZZINESS [None]
  - DRUG INEFFECTIVE [None]
  - EPISTAXIS [None]
  - EYE HAEMORRHAGE [None]
  - EYELID OEDEMA [None]
  - FATIGUE [None]
  - FEBRILE NEUTROPENIA [None]
  - MENINGITIS [None]
  - MYELODYSPLASTIC SYNDROME [None]
  - NIGHT SWEATS [None]
  - PANCYTOPENIA [None]
  - PLATELET COUNT DECREASED [None]
  - PYREXIA [None]
  - SEASONAL ALLERGY [None]
  - SKIN LESION [None]
  - STAPHYLOCOCCAL INFECTION [None]
  - VISION BLURRED [None]
  - WEIGHT DECREASED [None]
